FAERS Safety Report 23967517 (Version 1)
Quarter: 2024Q2

REPORT INFORMATION
  Report Type: Spontaneous
  Country: US (occurrence: None)
  Receive Date: 20240611
  Receipt Date: 20240611
  Transmission Date: 20240716
  Serious: Yes (Other)
  Sender: FDA-Public Use
  Company Number: None

PATIENT
  Age: 38 Year
  Sex: Male
  Weight: 70.2 kg

DRUGS (3)
  1. HYDROXYZINE HYDROCHLORIDE [Suspect]
     Active Substance: HYDROXYZINE HYDROCHLORIDE
     Indication: Multiple allergies
     Dosage: OTHER QUANTITY : 1 TABLET(S);?FREQUENCY : AT BEDTIME;?
     Route: 048
     Dates: start: 20240603, end: 20240604
  2. CLARITIN [Concomitant]
     Active Substance: LORATADINE
  3. VALERIAN [Concomitant]
     Active Substance: VALERIAN

REACTIONS (3)
  - Middle insomnia [None]
  - Pruritus [None]
  - Rash papular [None]

NARRATIVE: CASE EVENT DATE: 20240604
